FAERS Safety Report 23984869 (Version 5)
Quarter: 2024Q4

REPORT INFORMATION
  Report Type: Report from Study
  Country: US (occurrence: US)
  Receive Date: 20240618
  Receipt Date: 20241014
  Transmission Date: 20250115
  Serious: No
  Sender: DECIPHERA PHARMACEUTICALS
  Company Number: US-DECIPHERA PHARMACEUTICALS LLC-2024US000523

PATIENT
  Age: 75 Year
  Sex: Female

DRUGS (3)
  1. QINLOCK [Suspect]
     Active Substance: RIPRETINIB
     Indication: Gastrointestinal stromal tumour
     Dosage: 150 MILLIGRAM, QD
     Route: 048
     Dates: start: 20240419, end: 20240628
  2. QINLOCK [Suspect]
     Active Substance: RIPRETINIB
     Dosage: 100 MILLIGRAM, QD (2 PILLS PER DAY)
     Route: 048
     Dates: start: 202407, end: 20240906
  3. QINLOCK [Suspect]
     Active Substance: RIPRETINIB
     Dosage: 50 MILLIGRAM, QD
     Route: 048
     Dates: start: 2024, end: 2024

REACTIONS (16)
  - Joint swelling [Unknown]
  - Gingival bleeding [Unknown]
  - Blood sodium decreased [Unknown]
  - Hyperkeratosis [Unknown]
  - Pruritus [Unknown]
  - Alopecia [Unknown]
  - Palmar-plantar erythrodysaesthesia syndrome [Not Recovered/Not Resolved]
  - Muscle spasms [Recovered/Resolved]
  - Sinus congestion [Unknown]
  - Blood pressure decreased [Unknown]
  - Neoplasm progression [Unknown]
  - Renal disorder [Unknown]
  - Laboratory test abnormal [Unknown]
  - Hypersensitivity [Unknown]
  - Insomnia [Unknown]
  - Underdose [Unknown]

NARRATIVE: CASE EVENT DATE: 20240101
